FAERS Safety Report 15133396 (Version 1)
Quarter: 2018Q3

REPORT INFORMATION
  Report Type: Spontaneous
  Country: US (occurrence: US)
  Receive Date: 20180712
  Receipt Date: 20180712
  Transmission Date: 20181010
  Serious: Yes (Other)
  Sender: FDA-Public Use
  Company Number: US-BIOGEN-2005BI020852

PATIENT
  Sex: Female
  Weight: 86.26 kg

DRUGS (4)
  1. AVONEX [Suspect]
     Active Substance: INTERFERON BETA-1A
     Route: 030
     Dates: start: 2012
  2. AVONEX [Suspect]
     Active Substance: INTERFERON BETA-1A
     Route: 030
     Dates: start: 2003
  3. ESTRADIOL. [Concomitant]
     Active Substance: ESTRADIOL
     Indication: OESTROGEN REPLACEMENT THERAPY
     Route: 065
  4. AVONEX [Suspect]
     Active Substance: INTERFERON BETA-1A
     Indication: MULTIPLE SCLEROSIS
     Route: 030
     Dates: start: 19960501, end: 2003

REACTIONS (12)
  - Automatic bladder [Not Recovered/Not Resolved]
  - Hereditary haemochromatosis [Not Recovered/Not Resolved]
  - Type 2 diabetes mellitus [Not Recovered/Not Resolved]
  - Cholecystitis [Recovered/Resolved]
  - Exostosis [Not Recovered/Not Resolved]
  - Hypertension [Recovered/Resolved]
  - Multiple sclerosis relapse [Recovered/Resolved]
  - Pelvic cyst [Recovered/Resolved]
  - Depression [Recovered/Resolved]
  - Muscle spasms [Recovered/Resolved]
  - Blood cholesterol increased [Unknown]
  - Anxiety [Recovered/Resolved]

NARRATIVE: CASE EVENT DATE: 1998
